FAERS Safety Report 13133341 (Version 1)
Quarter: 2017Q1

REPORT INFORMATION
  Report Type: Spontaneous
  Country: US (occurrence: US)
  Receive Date: 20170119
  Receipt Date: 20170119
  Transmission Date: 20170509
  Serious: Yes (Hospitalization)
  Sender: FDA-Public Use
  Company Number: None

PATIENT
  Age: 71 Year
  Sex: Male
  Weight: 79.4 kg

DRUGS (2)
  1. LITHIUM. [Suspect]
     Active Substance: LITHIUM
     Indication: BIPOLAR I DISORDER
     Route: 048
     Dates: start: 20000601, end: 20161127
  2. LITHIUM. [Suspect]
     Active Substance: LITHIUM
     Dosage: MG PO
     Route: 048

REACTIONS (4)
  - Confusional state [None]
  - Somnolence [None]
  - Asthenia [None]
  - Dysarthria [None]

NARRATIVE: CASE EVENT DATE: 20161127
